FAERS Safety Report 8874245 (Version 1)
Quarter: 2012Q4

REPORT INFORMATION
  Report Type: 
  Country: GB (occurrence: GB)
  Receive Date: 20121031
  Receipt Date: 20121031
  Transmission Date: 20130627
  Serious: Yes (Hospitalization)
  Sender: FDA-Public Use
  Company Number: GB-MERCK-1210GBR012846

PATIENT
  Age: 79 Year
  Sex: Male
  Weight: 59.6 kg

DRUGS (11)
  1. DEXAMETHASONE [Suspect]
     Indication: MULTIPLE MYELOMA
     Dosage: 20 mg, UNK
     Route: 048
     Dates: start: 20120717, end: 20120728
  2. DEXAMETHASONE [Suspect]
     Dosage: 20 mg, UNK
     Route: 048
     Dates: start: 20120821
  3. CYCLOPHOSPHAMIDE [Suspect]
     Indication: MULTIPLE MYELOMA
     Dosage: 50 mg, UNK
     Route: 048
     Dates: start: 20120717, end: 20120728
  4. CYCLOPHOSPHAMIDE [Suspect]
     Dosage: 50 mg, UNK
     Route: 048
     Dates: start: 20120821
  5. VELCADE [Suspect]
     Indication: MULTIPLE MYELOMA
     Dosage: 1.3 mg/m2, UNK
     Route: 058
     Dates: start: 20120717, end: 20120728
  6. VELCADE [Suspect]
     Dosage: 0.7 mg/m2, UNK
     Dates: start: 20120821
  7. AMLODIPINE [Concomitant]
     Indication: HYPERTENSION
     Dosage: 5 mg, UNK
     Route: 048
  8. CLODRONATE DISODIUM [Concomitant]
     Dosage: 800 mg, UNK
     Route: 048
  9. EPOETIN ALFA [Concomitant]
     Indication: MULTIPLE MYELOMA
  10. SIMVASTATIN [Concomitant]
     Dosage: 40 mg, UNK
     Route: 048
  11. VALSARTAN [Concomitant]
     Indication: HYPERTENSION
     Dosage: 40 mg, UNK
     Route: 048

REACTIONS (2)
  - Orthostatic hypotension [Recovered/Resolved]
  - Neuropathy peripheral [Not Recovered/Not Resolved]
